FAERS Safety Report 9473362 (Version 2)
Quarter: 2013Q3

REPORT INFORMATION
  Report Type: Spontaneous
  Country: US (occurrence: US)
  Receive Date: 20130823
  Receipt Date: 20130823
  Transmission Date: 20140515
  Serious: Yes (Other)
  Sender: FDA-Public Use
  Company Number: US-BRISTOL-MYERS SQUIBB COMPANY-18921601

PATIENT
  Age: 63 Year
  Sex: Male
  Weight: 90.27 kg

DRUGS (45)
  1. LANTUS [Concomitant]
     Route: 058
     Dates: start: 20121203
  2. NOVOLOG [Concomitant]
     Dates: start: 20130429
  3. LEVOTHYROXINE [Concomitant]
     Route: 048
     Dates: start: 20130411
  4. ZEMPLAR [Concomitant]
     Route: 048
     Dates: start: 20130201
  5. FLOMAX [Concomitant]
     Route: 048
     Dates: start: 20130225
  6. SYMBICORT [Concomitant]
     Route: 055
  7. ALBUTEROL INHALER [Concomitant]
     Dates: start: 20121008
  8. LASIX [Concomitant]
     Indication: OEDEMA
     Dosage: ON 31OCT12 ALSO TKN
     Route: 048
     Dates: start: 20130418
  9. SIMETHICONE [Concomitant]
     Indication: FLATULENCE
     Dosage: 1DF=80-160MG
     Route: 048
     Dates: start: 20130429
  10. ATIVAN [Concomitant]
     Indication: NAUSEA
  11. ATIVAN [Concomitant]
     Indication: INSOMNIA
  12. COMPAZINE [Concomitant]
     Indication: NAUSEA
     Route: 048
  13. OXYCODONE [Concomitant]
     Indication: PAIN
  14. DILAUDID [Concomitant]
     Indication: PAIN
     Dosage: 1DF=2-4MG
     Route: 048
  15. ACYCLOVIR [Concomitant]
     Dosage: 5MAR13-UNK?24OCT12-UNK?10DC12-10NV13?UNK-24AUG12?4JUN12-APR12
     Route: 048
     Dates: start: 20130313
  16. CHOLECALCIFEROL [Concomitant]
     Dosage: 1DF=2000 UNITS
     Route: 048
  17. COUMADIN [Concomitant]
     Route: 048
     Dates: start: 20120405
  18. FLAGYL [Concomitant]
     Route: 048
     Dates: start: 20121121
  19. FLUCONAZOLE [Concomitant]
     Route: 048
  20. FOSCARNET [Concomitant]
     Route: 048
  21. GANCICLOVIR [Concomitant]
     Route: 042
     Dates: start: 20130124
  22. GLEEVEC [Concomitant]
     Route: 048
     Dates: start: 20121014, end: 20121030
  23. HUMALOG [Concomitant]
  24. LEVAQUIN [Concomitant]
  25. LISINOPRIL [Concomitant]
     Route: 048
  26. LUNESTA [Concomitant]
     Indication: INSOMNIA
     Route: 048
     Dates: start: 20120823
  27. MAGNESIUM SULFATE [Concomitant]
  28. MICAFUNGIN SODIUM [Concomitant]
  29. NORVASC [Concomitant]
  30. NYSTATIN [Concomitant]
  31. OMEPRAZOLE [Concomitant]
     Route: 048
  32. TESSALON [Concomitant]
     Dosage: CAPS
     Route: 048
  33. VALCYTE [Concomitant]
     Route: 048
  34. WARFARIN [Concomitant]
     Route: 048
  35. SPRYCEL (CML) TABS 100 MG [Suspect]
     Indication: ACUTE BIPHENOTYPIC LEUKAEMIA
     Dosage: HELD: 14MAY12,21MAY12-04JUN12,10DEC12 TO 21DEC12;70MG,22DEC12-20MAR13;100MG,29MAR13-9MAY13; 70 MG
     Route: 048
     Dates: start: 20120328
  36. INFLUENZA VACCINE [Concomitant]
     Route: 030
     Dates: start: 20121112
  37. VALCYTE [Concomitant]
     Route: 048
     Dates: start: 20130409
  38. PEN VK [Concomitant]
     Route: 048
  39. PENTAMIDINE [Concomitant]
     Dates: start: 20130515
  40. BACTRIM [Concomitant]
     Dates: start: 20121022
  41. AMOXICILLIN [Concomitant]
     Route: 048
  42. TACROLIMUS [Concomitant]
     Route: 048
     Dates: start: 20130603
  43. SYSTANE [Concomitant]
     Indication: DRY EYE
     Route: 047
  44. OSCAL D [Concomitant]
     Route: 048
  45. CENTRUM SILVER [Concomitant]
     Route: 048
     Dates: start: 20121022

REACTIONS (3)
  - Pulmonary hypertension [Unknown]
  - Pericardial effusion [Unknown]
  - Weight increased [Unknown]
